FAERS Safety Report 9362741 (Version 3)
Quarter: 2013Q4

REPORT INFORMATION
  Report Type: Spontaneous
  Country: FR (occurrence: FR)
  Receive Date: 20130622
  Receipt Date: 20131224
  Transmission Date: 20140711
  Serious: Yes (Other)
  Sender: FDA-Public Use
  Company Number: FR-UCBSA-089360

PATIENT
  Age: 59 Year
  Sex: Female

DRUGS (6)
  1. CIMZIA [Suspect]
     Indication: RHEUMATOID ARTHRITIS
     Route: 058
     Dates: start: 20110314, end: 20130502
  2. CIMZIA [Suspect]
     Indication: RHEUMATOID ARTHRITIS
     Dosage: UNKNOWN DOSE
     Dates: start: 20130701, end: 20131104
  3. IMETH [Suspect]
     Indication: RHEUMATOID ARTHRITIS
     Dosage: STRENGTH: 10 MG; 20 MG WEEKLY
     Route: 048
     Dates: start: 2006
  4. FOLIC ACID [Concomitant]
     Dosage: 10 MG WEEKLY
  5. ARCOXIA [Concomitant]
     Dosage: DAILY LONG TERM
  6. DAFALGAN CODEINE [Concomitant]
     Dosage: 500 MG/30 MG (PARACETAMOL + CODEINE) THREE TABLETS DAILY LONG TERM

REACTIONS (1)
  - Basal cell carcinoma [Not Recovered/Not Resolved]
